FAERS Safety Report 10451980 (Version 2)
Quarter: 2014Q3

REPORT INFORMATION
  Report Type: Spontaneous
  Country: JP (occurrence: JP)
  Receive Date: 20140915
  Receipt Date: 20140915
  Transmission Date: 20150326
  Serious: Yes (Hospitalization)
  Sender: FDA-Public Use
  Company Number: JP-BRISTOL-MYERS SQUIBB COMPANY-20590170

PATIENT
  Age: 69 Year
  Sex: Male
  Weight: 40.3 kg

DRUGS (6)
  1. MINOMYCIN [Suspect]
     Active Substance: MINOCYCLINE HYDROCHLORIDE
     Dosage: ONGOING;TAB
     Route: 048
  2. OXYCONTIN [Suspect]
     Active Substance: OXYCODONE HYDROCHLORIDE
     Dosage: TABS
     Route: 048
  3. ERBITUX [Suspect]
     Active Substance: CETUXIMAB
     Indication: HYPOPHARYNGEAL CANCER
     Dosage: ONGOING250MG/M2?01APR-08APR14;15APR14-15APR14
     Route: 041
     Dates: start: 20140319
  4. PARAPLATIN [Suspect]
     Active Substance: CARBOPLATIN
     Indication: HYPOPHARYNGEAL CANCER
     Dosage: ONGOING1DF-AUC 2.5?15APR14-15APR14
     Route: 041
     Dates: start: 20140319
  5. TAXOL [Suspect]
     Active Substance: PACLITAXEL
     Indication: HYPOPHARYNGEAL CANCER
     Dosage: INTRAVENOUS INFUSION?ONGOING19MAR14-01APR14?15APR14-15APR14
     Route: 041
     Dates: start: 20140319
  6. OXYNORM [Suspect]
     Active Substance: OXYCODONE HYDROCHLORIDE
     Route: 048

REACTIONS (8)
  - Hypoalbuminaemia [Unknown]
  - Hyperkalaemia [Unknown]
  - Hyponatraemia [Unknown]
  - Alanine aminotransferase increased [Unknown]
  - Pain [Unknown]
  - Aspartate aminotransferase increased [Unknown]
  - Haemoglobin decreased [Unknown]
  - Pneumonitis [Unknown]

NARRATIVE: CASE EVENT DATE: 20140324
